FAERS Safety Report 8433953-5 (Version None)
Quarter: 2012Q2

REPORT INFORMATION
  Report Type: 
  Country: None (occurrence: None)
  Receive Date: 20120613
  Receipt Date: 20120612
  Transmission Date: 20120825
  Serious: Yes (Death)
  Sender: FDA-Public Use
  Company Number: US-ROCHE-1067751

PATIENT
  Sex: Male
  Weight: 77.6 kg

DRUGS (24)
  1. VALACYCLOVIR HYDROCHLORIDE [Concomitant]
     Dates: start: 20120208
  2. RITALIN [Concomitant]
  3. SYNTHROID [Concomitant]
  4. MABTHERA [Suspect]
     Indication: HAIRY CELL LEUKAEMIA
     Dosage: 10 MG/ML
     Route: 042
     Dates: start: 20120209, end: 20120404
  5. LEVOTHYROXINE SODIUM [Concomitant]
  6. BACTRIM [Concomitant]
  7. CELEXA [Concomitant]
  8. FLAGYL [Concomitant]
  9. BACTRIM [Concomitant]
     Dates: start: 20120206
  10. XOPENEX [Concomitant]
  11. OXYCODONE HCL [Concomitant]
  12. BENDAMUSTINE [Suspect]
     Indication: HAIRY CELL LEUKAEMIA
     Route: 042
     Dates: start: 20120209, end: 20120405
  13. MORPHINE [Concomitant]
  14. ATROVENT [Concomitant]
  15. ATIVAN [Concomitant]
  16. CIPROFLOXACIN HCL [Concomitant]
  17. PRIMAX [Concomitant]
  18. TAMSULOSIN HCL [Concomitant]
  19. MUCOMYST [Concomitant]
  20. FLOMAX [Concomitant]
  21. EPOGEN [Concomitant]
  22. NEUPOGEN [Concomitant]
  23. DIFLUCAN [Concomitant]
  24. PRAVACHOL [Concomitant]

REACTIONS (3)
  - FEBRILE NEUTROPENIA [None]
  - SEPSIS [None]
  - LUNG INFECTION [None]
